FAERS Safety Report 4318074-5 (Version None)
Quarter: 2004Q1

REPORT INFORMATION
  Report Type: 
  Country: None (occurrence: None)
  Receive Date: 20040315
  Receipt Date: 20040301
  Transmission Date: 20041129
  Serious: Yes (Other)
  Sender: FDA-Public Use
  Company Number: US-JNJFOC-20040301967

PATIENT
  Age: 21 Year
  Sex: Female

DRUGS (1)
  1. DURAGESIC [Suspect]
     Indication: INTENTIONAL MISUSE
     Dosage: ORAL
     Route: 048

REACTIONS (4)
  - COMA [None]
  - HYPOVENTILATION [None]
  - INTENTIONAL MISUSE [None]
  - MEDICATION ERROR [None]
